FAERS Safety Report 9875902 (Version 1)
Quarter: 2013Q2

REPORT INFORMATION
  Report Type: Spontaneous
  Country: US (occurrence: None)
  Receive Date: 20121130
  Receipt Date: 20121130
  Transmission Date: 20140414
  Serious: Yes (Other)
  Sender: FDA-Public Use
  Company Number: 2011BH003128

PATIENT
  Sex: Female

DRUGS (7)
  1. SUPRANE [Suspect]
     Indication: GENERAL ANAESTHESIA
  2. ANCEF [Suspect]
     Indication: PROPHYLAXIS
  3. ONDANSETRON [Suspect]
     Indication: PROPHYLAXIS OF NAUSEA AND VOMITING
  4. DECADRON [Suspect]
     Indication: PROPHYLAXIS OF NAUSEA AND VOMITING
  5. NARCOTICS [Suspect]
     Indication: PRODUCT USED FOR UNKNOWN INDICATION
  6. KETOROLAC [Suspect]
     Indication: PRODUCT USED FOR UNKNOWN INDICATION
  7. ACETAMINOPHEN [Suspect]
     Indication: PRODUCT USED FOR UNKNOWN INDICATION
     Route: 048

REACTIONS (1)
  - Hepatotoxicity [None]
